FAERS Safety Report 12355285 (Version 2)
Quarter: 2016Q2

REPORT INFORMATION
  Report Type: Spontaneous
  Country: US (occurrence: US)
  Receive Date: 20160511
  Receipt Date: 20160516
  Transmission Date: 20160815
  Serious: Yes (Hospitalization, Other)
  Sender: FDA-Public Use
  Company Number: US-MDT-ADR-2016-00847

PATIENT
  Age: 66 Year
  Sex: Female

DRUGS (1)
  1. BACLOFEN. [Suspect]
     Active Substance: BACLOFEN
     Dosage: 925.6 MCG/DAY
     Route: 037

REACTIONS (4)
  - Drug withdrawal syndrome [Unknown]
  - Pyrexia [Unknown]
  - Muscle spasticity [Unknown]
  - Pneumonia [Unknown]

NARRATIVE: CASE EVENT DATE: 201605
